FAERS Safety Report 25251607 (Version 2)
Quarter: 2025Q2

REPORT INFORMATION
  Report Type: Spontaneous
  Country: JP (occurrence: JP)
  Receive Date: 20250429
  Receipt Date: 20250517
  Transmission Date: 20250716
  Serious: Yes (Hospitalization, Other)
  Sender: BRISTOL-MYERS SQUIBB COMPANY
  Company Number: JP-BRISTOL-MYERS SQUIBB COMPANY-2025-062031

PATIENT
  Age: 62 Year
  Sex: Male
  Weight: 57 kg

DRUGS (24)
  1. VIDAZA [Suspect]
     Active Substance: AZACITIDINE
     Indication: Acute myeloid leukaemia
     Dosage: 75 MG/M2/24 HOURS
     Route: 042
     Dates: start: 2022, end: 2022
  2. VIDAZA [Suspect]
     Active Substance: AZACITIDINE
     Dosage: 75 MG/M2/24 HOURS
     Route: 042
     Dates: start: 2023, end: 2023
  3. VIDAZA [Suspect]
     Active Substance: AZACITIDINE
     Dosage: 32 MG/M2/24 HOURS
     Route: 042
     Dates: start: 2023, end: 2023
  4. VIDAZA [Suspect]
     Active Substance: AZACITIDINE
     Dosage: 32 MG/M2/24 HOURS
     Route: 042
     Dates: start: 2023
  5. VIDAZA [Suspect]
     Active Substance: AZACITIDINE
     Dosage: 75 MG/M2/24 HOURS
     Route: 042
  6. CYTARABINE [Concomitant]
     Active Substance: CYTARABINE
     Indication: Acute myeloid leukaemia
     Dates: start: 2022, end: 2022
  7. CYTARABINE [Concomitant]
     Active Substance: CYTARABINE
     Dates: start: 2022, end: 2022
  8. VENCLEXTA [Concomitant]
     Active Substance: VENETOCLAX
     Indication: Acute myeloid leukaemia
     Dates: start: 2022, end: 2022
  9. VENCLEXTA [Concomitant]
     Active Substance: VENETOCLAX
     Dates: start: 2022, end: 2022
  10. VENCLEXTA [Concomitant]
     Active Substance: VENETOCLAX
     Dates: start: 2023
  11. VENCLEXTA [Concomitant]
     Active Substance: VENETOCLAX
  12. IDAMYCIN [Concomitant]
     Active Substance: IDARUBICIN HYDROCHLORIDE
     Indication: Acute myeloid leukaemia
     Dates: start: 2022, end: 2022
  13. ACLARUBICIN HYDROCHLORIDE [Concomitant]
     Active Substance: ACLARUBICIN HYDROCHLORIDE
     Dates: start: 2022, end: 2022
  14. FILGRASTIM [Concomitant]
     Active Substance: FILGRASTIM
     Indication: Acute myeloid leukaemia
     Dates: start: 2022, end: 2022
  15. FLUCONAZOLE [Concomitant]
     Active Substance: FLUCONAZOLE
     Indication: Acute myeloid leukaemia
     Dates: start: 2022, end: 2022
  16. FLUCONAZOLE [Concomitant]
     Active Substance: FLUCONAZOLE
     Dates: start: 2022, end: 2022
  17. TACROLIMUS [Concomitant]
     Active Substance: TACROLIMUS
     Indication: Graft versus host disease
     Dates: start: 2023, end: 2023
  18. TACROLIMUS [Concomitant]
     Active Substance: TACROLIMUS
     Dates: start: 2023, end: 2023
  19. METHOTREXATE [Concomitant]
     Active Substance: METHOTREXATE
     Indication: Graft versus host disease
     Dates: start: 2023
  20. PREDNISOLONE [Concomitant]
     Active Substance: PREDNISOLONE
     Indication: Graft versus host disease
     Dates: start: 2023, end: 2023
  21. PREDNISOLONE [Concomitant]
     Active Substance: PREDNISOLONE
     Dates: start: 2023, end: 2023
  22. FLUDARABINE [Concomitant]
     Active Substance: FLUDARABINE PHOSPHATE
     Indication: Acute myeloid leukaemia
     Dates: start: 2023
  23. BUSULFAN [Concomitant]
     Active Substance: BUSULFAN
     Indication: Acute myeloid leukaemia
     Dates: start: 2023
  24. BECLOMETHASONE [Concomitant]
     Active Substance: BECLOMETHASONE
     Indication: Graft versus host disease
     Route: 048

REACTIONS (4)
  - Cellulitis [Recovered/Resolved]
  - Pleural effusion [Recovered/Resolved]
  - Hepatic function abnormal [Unknown]
  - Performance status decreased [Recovering/Resolving]

NARRATIVE: CASE EVENT DATE: 20230101
